FAERS Safety Report 21089824 (Version 1)
Quarter: 2022Q3

REPORT INFORMATION
  Report Type: Spontaneous
  Country: TR (occurrence: TR)
  Receive Date: 20220715
  Receipt Date: 20220715
  Transmission Date: 20221026
  Serious: Yes (Other)
  Sender: FDA-Public Use
  Company Number: TR-ALXN-A202208112

PATIENT
  Age: 4 Year
  Sex: Female

DRUGS (1)
  1. SOLIRIS [Suspect]
     Active Substance: ECULIZUMAB
     Indication: Atypical haemolytic uraemic syndrome
     Route: 065

REACTIONS (3)
  - Tractional retinal detachment [Unknown]
  - Strabismus [Unknown]
  - Cataract subcapsular [Unknown]
